FAERS Safety Report 4358230-3 (Version None)
Quarter: 2004Q2

REPORT INFORMATION
  Report Type: 
  Country: None (occurrence: None)
  Receive Date: 20040511
  Receipt Date: 20040504
  Transmission Date: 20050107
  Serious: Yes (Other)
  Sender: FDA-Public Use
  Company Number: 2004025545

PATIENT
  Age: 48 Year
  Sex: Male

DRUGS (3)
  1. ATARAX [Suspect]
     Indication: ANXIETY
     Dosage: 62.5 MG ORAL
     Route: 048
     Dates: start: 20040121, end: 20040304
  2. RISPERDAL [Suspect]
     Indication: DELIRIUM
     Dosage: ORAL
     Route: 048
     Dates: start: 20040210, end: 20040304
  3. AMISULPRIDE (AMISULPRIDE) [Concomitant]

REACTIONS (3)
  - DELIRIUM [None]
  - GAMMA-GLUTAMYLTRANSFERASE INCREASED [None]
  - HEPATIC FUNCTION ABNORMAL [None]
